FAERS Safety Report 4565607-X (Version None)
Quarter: 2005Q1

REPORT INFORMATION
  Report Type: 
  Country: None (occurrence: None)
  Receive Date: 20050126
  Receipt Date: 20050111
  Transmission Date: 20050727
  Serious: Yes (Death)
  Sender: FDA-Public Use
  Company Number: USA041285886

PATIENT
  Age: 61 Year
  Sex: Male
  Weight: 132 kg

DRUGS (4)
  1. CYMBALTA [Suspect]
     Indication: DEPRESSION
     Dosage: 60 MG
     Dates: start: 20040830
  2. LEXAPRO [Concomitant]
  3. HYPNOTICS [Concomitant]
  4. ANXIOLYTICS [Concomitant]

REACTIONS (4)
  - COMPLETED SUICIDE [None]
  - GALLBLADDER DISORDER [None]
  - NAUSEA [None]
  - TREATMENT NONCOMPLIANCE [None]
